FAERS Safety Report 7313985-0 (Version None)
Quarter: 2011Q1

REPORT INFORMATION
  Report Type: 
  Country: None (occurrence: None)
  Receive Date: 20110225
  Receipt Date: 20110216
  Transmission Date: 20110831
  Serious: Yes (Other)
  Sender: FDA-Public Use
  Company Number: PHHY2010AU63368

PATIENT
  Sex: Female

DRUGS (3)
  1. NASONEX [Concomitant]
     Indication: UPPER AIRWAY OBSTRUCTION
     Dosage: UNK
     Dates: start: 20100101
  2. TEGRETOL [Suspect]
     Indication: NEURALGIA
     Dosage: 400 MG PER DAY
     Route: 048
     Dates: start: 20100401
  3. TEGRETOL [Suspect]
     Dosage: 800 MG PER DAY
     Route: 048
     Dates: end: 20100720

REACTIONS (10)
  - ASPARTATE AMINOTRANSFERASE INCREASED [None]
  - PARAESTHESIA [None]
  - ALANINE AMINOTRANSFERASE INCREASED [None]
  - LIVER FUNCTION TEST ABNORMAL [None]
  - BLOOD LACTATE DEHYDROGENASE INCREASED [None]
  - BLOOD CREATINE PHOSPHOKINASE INCREASED [None]
  - GLOBULINS DECREASED [None]
  - MYOSITIS [None]
  - MUSCLE TIGHTNESS [None]
  - GAMMA-GLUTAMYLTRANSFERASE INCREASED [None]
